FAERS Safety Report 18599717 (Version 1)
Quarter: 2020Q4

REPORT INFORMATION
  Report Type: Not Available
  Country: None (occurrence: None)
  Receive Date: 20201210
  Receipt Date: 20201210
  Transmission Date: 20210114
  Serious: No
  Sender: FDA-Public Use
  Company Number: ROCHE-2218368

PATIENT
  Age: 52 Year

DRUGS (9)
  1. OCREVUS [Suspect]
     Active Substance: OCRELIZUMAB
     Dosage: 300 MG AT DAY 0 AND 14, THEN 600 MG EVERY 6 MONTH,ONGOING:HOLD
     Dates: start: 20180927
  2. NAPROXEN. [Concomitant]
     Active Substance: NAPROXEN
  3. PREGABALIN. [Concomitant]
     Active Substance: PREGABALIN
  4. AMOXICLAV [Concomitant]
     Active Substance: AMOXICILLIN\CLAVULANATE POTASSIUM
  5. PANTOPRAZOLE [Concomitant]
     Active Substance: PANTOPRAZOLE
  6. BACLOFEN. [Concomitant]
     Active Substance: BACLOFEN
  7. ESCITALOPRAM [Concomitant]
     Active Substance: ESCITALOPRAM OXALATE
  8. OCREVUS [Suspect]
     Active Substance: OCRELIZUMAB
     Dosage: CONCENTRATE FOR INTRAVENOUS INFUSION
  9. OXYCOCET [Concomitant]
     Active Substance: ACETAMINOPHEN\OXYCODONE HYDROCHLORIDE

REACTIONS (13)
  - Euphoric mood [None]
  - Cough [None]
  - White blood cell count increased [None]
  - Pneumonia [None]
  - Urinary tract infection [None]
  - Vulvovaginal mycotic infection [None]
  - Haemoglobin decreased [None]
  - Tooth fracture [None]
  - Pain [None]
  - Bone contusion [None]
  - Fall [None]
  - Arthralgia [None]
  - Musculoskeletal stiffness [None]

NARRATIVE: CASE EVENT DATE: 20180927
